FAERS Safety Report 8137780-8 (Version None)
Quarter: 2012Q1

REPORT INFORMATION
  Report Type: 
  Country: None (occurrence: None)
  Receive Date: 20120215
  Receipt Date: 20120208
  Transmission Date: 20120608
  Serious: Yes (Other)
  Sender: FDA-Public Use
  Company Number: US-BAYER-2011-075080

PATIENT
  Age: 26 Year
  Sex: Female
  Weight: 61.224 kg

DRUGS (4)
  1. YASMIN [Suspect]
     Indication: CONTRACEPTION
     Dosage: UNK
     Route: 048
     Dates: start: 20020819, end: 20030801
  2. YASMIN [Suspect]
     Dosage: UNK
     Dates: start: 20050129, end: 20060901
  3. NSAID'S [Concomitant]
  4. IMITREX [Concomitant]
     Indication: MIGRAINE
     Dosage: UNK
     Route: 048
     Dates: start: 19980101

REACTIONS (2)
  - PAIN [None]
  - CHOLECYSTITIS CHRONIC [None]
